FAERS Safety Report 4345100-X (Version None)
Quarter: 2004Q2

REPORT INFORMATION
  Report Type: 
  Country: None (occurrence: None)
  Receive Date: 20040421
  Receipt Date: 20040421
  Transmission Date: 20050107
  Serious: No
  Sender: FDA-Public Use
  Company Number: None

PATIENT
  Sex: Male
  Weight: 108.2 kg

DRUGS (12)
  1. TRILEPTAL [Suspect]
     Indication: SCHIZOAFFECTIVE DISORDER
     Dosage: 600 MG BID ORAL
     Route: 048
     Dates: start: 20031223, end: 20040304
  2. DOCUSATE [Concomitant]
  3. FLUTICASONE MDI [Concomitant]
  4. CITRUCEL [Concomitant]
  5. SINGULAIR [Concomitant]
  6. PRILOSEC [Concomitant]
  7. CLONAZEPAM [Concomitant]
  8. LOVASTATIN [Concomitant]
  9. PROVIGIL [Concomitant]
  10. ZYPREXA [Concomitant]
  11. SEROQUEL [Concomitant]
  12. BEXTRA [Concomitant]

REACTIONS (2)
  - HYPOCHLORAEMIA [None]
  - HYPONATRAEMIA [None]
